FAERS Safety Report 12523069 (Version 2)
Quarter: 2016Q3

REPORT INFORMATION
  Report Type: Spontaneous
  Country: US (occurrence: US)
  Receive Date: 20160701
  Receipt Date: 20160824
  Transmission Date: 20161109
  Serious: Yes (Hospitalization)
  Sender: FDA-Public Use
  Company Number: US-ALLERGAN-1661698US

PATIENT
  Age: 86 Year
  Sex: Female

DRUGS (2)
  1. BOTOX [Suspect]
     Active Substance: ONABOTULINUMTOXINA
     Indication: MUSCLE TIGHTNESS
     Dosage: 100 UNITS, SINGLE
     Route: 030
     Dates: start: 20160531, end: 20160531
  2. BOTOX [Suspect]
     Active Substance: ONABOTULINUMTOXINA
     Dosage: 100 UNITS, SINGLE
     Route: 030
     Dates: start: 20160531, end: 20160531

REACTIONS (4)
  - Off label use [Unknown]
  - Fall [Unknown]
  - Confusional state [Unknown]
  - Urinary tract infection [Unknown]
